FAERS Safety Report 20341046 (Version 2)
Quarter: 2025Q4

REPORT INFORMATION
  Report Type: Report from Study
  Country: US (occurrence: US)
  Receive Date: 20220117
  Receipt Date: 20251209
  Transmission Date: 20260117
  Serious: No
  Sender: KYOWA
  Company Number: US-KYOWAKIRIN-2022BKK000111

PATIENT

DRUGS (2)
  1. BUROSUMAB [Suspect]
     Active Substance: BUROSUMAB
     Indication: Hereditary hypophosphataemic rickets
     Dosage: 30 MG, 1X/2 WEEKS
     Route: 058
     Dates: start: 202204
  2. BUROSUMAB [Suspect]
     Active Substance: BUROSUMAB
     Indication: Hereditary hypophosphataemic rickets
     Dosage: UNK, 1X/2 WEEKS (EVERY 14 DAYS)
     Route: 065
     Dates: start: 20211203

REACTIONS (3)
  - Increased appetite [Unknown]
  - Injection site urticaria [Unknown]
  - Injection site erythema [Unknown]

NARRATIVE: CASE EVENT DATE: 20211201
